FAERS Safety Report 14627966 (Version 2)
Quarter: 2018Q2

REPORT INFORMATION
  Report Type: Spontaneous
  Country: US (occurrence: US)
  Receive Date: 20180312
  Receipt Date: 20180605
  Transmission Date: 20180711
  Serious: No
  Sender: FDA-Public Use
  Company Number: US-ACTELION-A-NJ2018-167953

PATIENT
  Age: 44 Year
  Sex: Female
  Weight: 27.66 kg

DRUGS (8)
  1. UPTRAVI [Suspect]
     Active Substance: SELEXIPAG
     Dosage: UNK
     Route: 048
  2. REMODULIN [Suspect]
     Active Substance: TREPROSTINIL
     Indication: PULMONARY ARTERIAL HYPERTENSION
     Dosage: 4 NG/KG, PER MIN
     Route: 058
     Dates: start: 20170802
  3. TRACLEER [Concomitant]
     Active Substance: BOSENTAN
     Indication: PULMONARY ARTERIAL HYPERTENSION
     Route: 048
  4. UPTRAVI [Suspect]
     Active Substance: SELEXIPAG
     Indication: PULMONARY ARTERIAL HYPERTENSION
     Dosage: 1200 MCG, BID
     Route: 048
     Dates: start: 20180212
  5. REMODULIN [Suspect]
     Active Substance: TREPROSTINIL
     Dosage: 22 NG/KG, PER MIN
     Route: 058
     Dates: start: 20170825, end: 20180207
  6. UPTRAVI [Suspect]
     Active Substance: SELEXIPAG
     Dosage: 1000 MCG, BID
     Route: 048
  7. UPTRAVI [Suspect]
     Active Substance: SELEXIPAG
     Dosage: 800 MCG, BID
     Route: 048
  8. WARFARIN [Concomitant]
     Active Substance: WARFARIN

REACTIONS (25)
  - Back pain [Unknown]
  - Drug administration error [Unknown]
  - Drug dose omission [Unknown]
  - Headache [Unknown]
  - Insomnia [Unknown]
  - Fatigue [Unknown]
  - Abdominal discomfort [Unknown]
  - Pain [Unknown]
  - Cough [Unknown]
  - Heart rate increased [Unknown]
  - Nasal congestion [Unknown]
  - Lymphadenopathy [Unknown]
  - Palpitations [Unknown]
  - Burning sensation [Unknown]
  - Dyspnoea [Unknown]
  - Feeling abnormal [Unknown]
  - Gastrointestinal disorder [Unknown]
  - Nasopharyngitis [Unknown]
  - Infusion site induration [Unknown]
  - Nausea [Unknown]
  - Pain in jaw [Unknown]
  - Infusion site discolouration [Unknown]
  - Infusion site pain [Unknown]
  - Flushing [Unknown]
  - Malaise [Unknown]
